FAERS Safety Report 4332735-3 (Version None)
Quarter: 2004Q1

REPORT INFORMATION
  Report Type: 
  Country: None (occurrence: None)
  Receive Date: 20040330
  Receipt Date: 20040316
  Transmission Date: 20041129
  Serious: Yes (Other)
  Sender: FDA-Public Use
  Company Number: US-JNJFOC-20040102950

PATIENT
  Age: 46 Year
  Sex: Female
  Weight: 68.0396 kg

DRUGS (5)
  1. REMICADE [Suspect]
     Indication: CROHN'S DISEASE
     Dosage: SEE IMAGE INTRAVENOUS
     Route: 042
     Dates: start: 20040129
  2. DARVOCET [Concomitant]
  3. IRON (IRON) [Concomitant]
  4. MULTIVITAMIN (MULTIVITAMIN) [Concomitant]
  5. IMURAN [Concomitant]

REACTIONS (5)
  - CONDITION AGGRAVATED [None]
  - CROHN'S DISEASE [None]
  - DRUG INEFFECTIVE [None]
  - HAEMOGLOBIN DECREASED [None]
  - LUPUS-LIKE SYNDROME [None]
